FAERS Safety Report 6592554-4 (Version None)
Quarter: 2010Q1

REPORT INFORMATION
  Report Type: 
  Country: None (occurrence: None)
  Receive Date: 20100221
  Receipt Date: 20091023
  Transmission Date: 20100710
  Serious: No
  Sender: FDA-Public Use
  Company Number: US-ALLERGAN-0914808US

PATIENT
  Sex: Female

DRUGS (3)
  1. BOTOX COSMETIC [Suspect]
     Indication: SKIN WRINKLING
     Dosage: 80 UNITS, SINGLE
     Dates: start: 20091009, end: 20091009
  2. DYSPORT [Suspect]
     Indication: SKIN WRINKLING
     Dosage: 50 UNITS, UNK
     Dates: start: 20091009, end: 20091009
  3. ATIVAN [Concomitant]
     Indication: ANXIETY

REACTIONS (3)
  - EYELID OEDEMA [None]
  - NAUSEA [None]
  - TENSION HEADACHE [None]
